FAERS Safety Report 10021483 (Version 4)
Quarter: 2014Q4

REPORT INFORMATION
  Report Type: Report from Study
  Country: US (occurrence: US)
  Receive Date: 20140319
  Receipt Date: 20141114
  Transmission Date: 20150528
  Serious: Yes (Hospitalization)
  Sender: FDA-Public Use
  Company Number: US-SA-2014SA032485

PATIENT
  Age: 66 Year
  Sex: Female
  Weight: 79.4 kg

DRUGS (20)
  1. SAR307746 [Suspect]
     Active Substance: UNSPECIFIED INGREDIENT
     Indication: COLORECTAL CANCER METASTATIC
     Route: 042
     Dates: start: 20140218, end: 20140218
  2. PACLITAXEL. [Suspect]
     Active Substance: PACLITAXEL
     Indication: COLORECTAL CANCER METASTATIC
     Route: 042
     Dates: start: 20140225, end: 20140225
  3. VISTARIL [Concomitant]
     Active Substance: HYDROXYZINE PAMOATE
     Indication: PREMEDICATION
     Route: 048
     Dates: start: 20140204
  4. AFLIBERCEPT [Suspect]
     Active Substance: AFLIBERCEPT
     Indication: COLORECTAL CANCER METASTATIC
     Route: 041
     Dates: start: 20140204, end: 20140204
  5. PACLITAXEL. [Suspect]
     Active Substance: PACLITAXEL
     Indication: COLORECTAL CANCER METASTATIC
     Route: 042
     Dates: start: 20140204, end: 20140204
  6. SAR307746 [Suspect]
     Active Substance: UNSPECIFIED INGREDIENT
     Indication: COLORECTAL CANCER METASTATIC
     Route: 042
     Dates: start: 20140204, end: 20140204
  7. MULTIVITAMINS [Concomitant]
     Active Substance: VITAMINS
     Route: 048
     Dates: start: 1994
  8. CHERATUSSIN [Concomitant]
     Indication: UPPER RESPIRATORY TRACT INFECTION
     Dosage: FREQ: Q4-6 H
     Route: 048
     Dates: start: 20140206
  9. AUGMENTIN [Suspect]
     Active Substance: AMOXICILLIN\CLAVULANATE POTASSIUM
     Indication: UPPER RESPIRATORY TRACT INFECTION
     Dosage: DOSE: 50/125 MG
     Route: 048
     Dates: start: 20140206, end: 20140216
  10. DEXILANT [Concomitant]
     Active Substance: DEXLANSOPRAZOLE
     Indication: GASTROOESOPHAGEAL REFLUX DISEASE
     Route: 048
     Dates: start: 2009
  11. FISH OIL [Concomitant]
     Active Substance: FISH OIL
     Route: 048
     Dates: start: 2007
  12. LIPITOR [Concomitant]
     Active Substance: ATORVASTATIN CALCIUM
     Indication: HYPERCHOLESTEROLAEMIA
     Route: 048
     Dates: start: 2004
  13. METFORMIN [Concomitant]
     Active Substance: METFORMIN HYDROCHLORIDE
     Indication: DIABETES MELLITUS
     Route: 048
     Dates: start: 2004
  14. JANUVIA [Concomitant]
     Active Substance: SITAGLIPTIN PHOSPHATE
     Indication: DIABETES MELLITUS
     Route: 048
     Dates: start: 2010
  15. CALCIUM/VITAMIN D [Concomitant]
     Active Substance: CALCIUM\VITAMIN D
     Dosage: DOSE: 600/200 MG
     Route: 048
     Dates: start: 2004
  16. AFLIBERCEPT [Suspect]
     Active Substance: AFLIBERCEPT
     Indication: COLORECTAL CANCER METASTATIC
     Route: 041
     Dates: start: 20140218, end: 20140218
  17. AVALIDE [Concomitant]
     Active Substance: HYDROCHLOROTHIAZIDE\IRBESARTAN
     Indication: HYPERTENSION
     Dosage: DOSE: 300/12.5 MG
     Route: 048
     Dates: start: 2009
  18. GLIPIZIDE. [Concomitant]
     Active Substance: GLIPIZIDE
     Indication: DIABETES MELLITUS
     Route: 048
     Dates: start: 1994
  19. SYNTHROID [Concomitant]
     Active Substance: LEVOTHYROXINE SODIUM
     Indication: HYPOTHYROIDISM
     Route: 048
     Dates: start: 1984
  20. COMPAZINE [Concomitant]
     Active Substance: PROCHLORPERAZINE MALEATE
     Indication: NAUSEA
     Dosage: FREQ: PRN
     Route: 048
     Dates: start: 20140204

REACTIONS (2)
  - Dysphagia [Recovered/Resolved]
  - Non-cardiac chest pain [Recovered/Resolved]

NARRATIVE: CASE EVENT DATE: 20140307
